FAERS Safety Report 16197198 (Version 1)
Quarter: 2019Q2

REPORT INFORMATION
  Report Type: Spontaneous
  Country: GB (occurrence: GB)
  Receive Date: 20190415
  Receipt Date: 20190415
  Transmission Date: 20190711
  Serious: Yes (Hospitalization)
  Sender: FDA-Public Use
  Company Number: GB-TEVA-2019-GB-1037083

PATIENT
  Age: 67 Year
  Sex: Female
  Weight: 90.4 kg

DRUGS (15)
  1. ATORVASTATIN [Concomitant]
     Active Substance: ATORVASTATIN
  2. PROCHLORPERAZINE. [Concomitant]
     Active Substance: PROCHLORPERAZINE
  3. SITAGLIPTIN [Concomitant]
     Active Substance: SITAGLIPTIN
  4. PREGABALIN. [Concomitant]
     Active Substance: PREGABALIN
  5. TRAMADOL. [Concomitant]
     Active Substance: TRAMADOL
  6. TOLTERODINE [Concomitant]
     Active Substance: TOLTERODINE
  7. BISOPROLOL [Concomitant]
     Active Substance: BISOPROLOL
  8. HYPROMELLOSE [Concomitant]
     Active Substance: HYPROMELLOSES
  9. METFORMIN [Concomitant]
     Active Substance: METFORMIN HYDROCHLORIDE
  10. RAMIPRIL. [Concomitant]
     Active Substance: RAMIPRIL
  11. SODIUM VALPROATE [Suspect]
     Active Substance: VALPROATE SODIUM
     Indication: PARTIAL SEIZURES
     Dosage: 1000 MILLIGRAM DAILY;
     Route: 048
     Dates: start: 20190112, end: 20190316
  12. CLONIDINE. [Concomitant]
     Active Substance: CLONIDINE
  13. GLICLAZIDE [Concomitant]
     Active Substance: GLICLAZIDE
  14. LANSOPRAZOLE. [Concomitant]
     Active Substance: LANSOPRAZOLE
  15. ACETYLSALICYLIC ACID [Concomitant]
     Active Substance: ASPIRIN

REACTIONS (5)
  - Tremor [Unknown]
  - Delirium [Recovering/Resolving]
  - Somnolence [Unknown]
  - Balance disorder [Unknown]
  - Oedema peripheral [Unknown]

NARRATIVE: CASE EVENT DATE: 201901
